FAERS Safety Report 21960805 (Version 1)
Quarter: 2023Q1

REPORT INFORMATION
  Report Type: Other
  Country: US (occurrence: None)
  Receive Date: 20230207
  Receipt Date: 20230207
  Transmission Date: 20230418
  Serious: Yes (Other)
  Sender: FDA-Public Use
  Company Number: US-ROCHE-3275482

PATIENT
  Age: 41 Year
  Sex: Male

DRUGS (1)
  1. HEMLIBRA [Suspect]
     Active Substance: EMICIZUMAB-KXWH
     Indication: Haemophilia
     Dosage: INJECT 315MG (2.1ML) SUBCUTANEOUSLY STARTING WEEK 5 AFTER LOADING DOSES EVERY 2 WEEK
     Route: 058

REACTIONS (1)
  - Hepatic cirrhosis [Unknown]
